FAERS Safety Report 7370718-X (Version None)
Quarter: 2011Q1

REPORT INFORMATION
  Report Type: 
  Country: None (occurrence: None)
  Receive Date: 20110323
  Receipt Date: 20110301
  Transmission Date: 20110831
  Serious: Yes (Death, Hospitalization)
  Sender: FDA-Public Use
  Company Number: IT-BAYER-2011-019167

PATIENT
  Sex: Female

DRUGS (1)
  1. ASPIRIN [Suspect]
     Indication: PROPHYLAXIS
     Dosage: 100 MG, QD
     Route: 048
     Dates: start: 20090101, end: 20110120

REACTIONS (7)
  - RESPIRATORY ARREST [None]
  - VOMITING [None]
  - UNRESPONSIVE TO STIMULI [None]
  - CEREBRAL HAEMORRHAGE [None]
  - MIOSIS [None]
  - COMA [None]
  - URINARY INCONTINENCE [None]
